FAERS Safety Report 6901420-3 (Version None)
Quarter: 2010Q3

REPORT INFORMATION
  Report Type: 
  Country: None (occurrence: None)
  Receive Date: 20100803
  Receipt Date: 20080128
  Transmission Date: 20110219
  Serious: No
  Sender: FDA-Public Use
  Company Number: US-PFIZER INC-2008009400

PATIENT
  Sex: Female
  Weight: 89.8 kg

DRUGS (5)
  1. LYRICA [Suspect]
     Indication: NEURALGIA
     Dates: start: 20070901
  2. SYMLIN [Interacting]
     Indication: TYPE 1 DIABETES MELLITUS
     Dates: start: 20070101
  3. NOVOLOG [Concomitant]
  4. CALCIUM [Concomitant]
  5. CARDIOVASCULAR SYSTEM DRUGS [Concomitant]

REACTIONS (3)
  - DRUG INEFFECTIVE [None]
  - DRUG INTERACTION [None]
  - WEIGHT INCREASED [None]
